FAERS Safety Report 5242936-8 (Version None)
Quarter: 2007Q1

REPORT INFORMATION
  Report Type: 
  Country: None (occurrence: None)
  Receive Date: 20070215
  Receipt Date: 20070129
  Transmission Date: 20070707
  Serious: Yes (Other)
  Sender: FDA-Public Use
  Company Number: 430001N07USA

PATIENT
  Age: 43 Year
  Sex: Male
  Weight: 116 kg

DRUGS (18)
  1. NOVANTRONE [Suspect]
     Dosage: 25 MG, 1 IN 3 MONTHS, INTRAVENOUS (NOT OTHERWISE SPECIFIED)
     Route: 042
     Dates: start: 20020514, end: 20030305
  2. VENLAFAXINE HCL [Concomitant]
  3. SUMATRIPTAN SUCCINATE [Concomitant]
  4. LITHIUM CARBONATE [Concomitant]
  5. GABAPENTIN [Concomitant]
  6. CYCLOBENZAPRINE HCL [Concomitant]
  7. AMANTADINE HCL [Concomitant]
  8. TOLTERODINE [Concomitant]
  9. TESTOSTERONE [Concomitant]
  10. BACLOFEN [Concomitant]
  11. RISPERDAL [Concomitant]
  12. LOVASTATIN [Concomitant]
  13. GLATIRAMER ACETATE [Concomitant]
  14. METHYLPHENIDATE HCL [Concomitant]
  15. COTYLENOL [Concomitant]
  16. HYDROMORPHONE HCL [Concomitant]
  17. CEPHALEXIN [Concomitant]
  18. OXYCODONE HCL [Concomitant]

REACTIONS (1)
  - EJECTION FRACTION DECREASED [None]
